FAERS Safety Report 6563217-6 (Version None)
Quarter: 2010Q1

REPORT INFORMATION
  Report Type: 
  Country: None (occurrence: None)
  Receive Date: 20100130
  Receipt Date: 20091209
  Transmission Date: 20100710
  Serious: No
  Sender: FDA-Public Use
  Company Number: US-ABBOTT-09P-163-0613211-00

PATIENT
  Sex: Male
  Weight: 86.26 kg

DRUGS (3)
  1. HUMIRA [Suspect]
     Indication: PSORIASIS
     Route: 058
     Dates: start: 20090901
  2. HUMIRA [Suspect]
     Route: 058
     Dates: end: 20091101
  3. CYCLOSPORINE [Concomitant]
     Indication: DRUG USE FOR UNKNOWN INDICATION

REACTIONS (7)
  - ABNORMAL DREAMS [None]
  - BLISTER [None]
  - FOLLICULITIS [None]
  - OEDEMA PERIPHERAL [None]
  - PUSTULAR PSORIASIS [None]
  - RASH GENERALISED [None]
  - SWOLLEN TONGUE [None]
